FAERS Safety Report 7332186-3 (Version None)
Quarter: 2011Q1

REPORT INFORMATION
  Report Type: 
  Country: None (occurrence: None)
  Receive Date: 20110223
  Receipt Date: 20110208
  Transmission Date: 20110831
  Serious: Yes (Other)
  Sender: FDA-Public Use
  Company Number: UTC-005158

PATIENT
  Age: 61 Year
  Sex: Female
  Weight: 61 kg

DRUGS (2)
  1. REMODULIN [Suspect]
     Indication: PULMONARY HYPERTENSION
     Dosage: 108 UG/KG (0.075 UG/KG,1 IN 1 MIN),INTRAVENOUS
     Route: 042
  2. REVATIO [Concomitant]

REACTIONS (4)
  - HYPOTENSION [None]
  - CONVULSION [None]
  - SHOCK [None]
  - CARDIO-RESPIRATORY ARREST [None]
